FAERS Safety Report 10252693 (Version 1)
Quarter: 2014Q2

REPORT INFORMATION
  Report Type: Spontaneous
  Country: NZ (occurrence: NZ)
  Receive Date: 20140623
  Receipt Date: 20140623
  Transmission Date: 20141212
  Serious: Yes (Other)
  Sender: FDA-Public Use
  Company Number: NZ-ACTAVIS-2014-12983

PATIENT
  Sex: Male

DRUGS (2)
  1. QUINAPRIL [Suspect]
     Indication: BLOOD PRESSURE
     Dosage: 20 MG, DAILY
     Route: 048
     Dates: start: 20140606, end: 20140609
  2. QUINAPRIL [Suspect]
     Dosage: 20 MG, DAILY
     Route: 048

REACTIONS (2)
  - Hypertension [Unknown]
  - Drug ineffective [Unknown]
